FAERS Safety Report 5850673-1 (Version None)
Quarter: 2008Q3

REPORT INFORMATION
  Report Type: 
  Country: None (occurrence: None)
  Receive Date: 20080818
  Receipt Date: 20070502
  Transmission Date: 20090109
  Serious: Yes (Hospitalization, Other)
  Sender: FDA-Public Use
  Company Number: 2008AP001966

PATIENT
  Age: 57 Year
  Sex: Male

DRUGS (1)
  1. TERBINAFINE HCL [Suspect]
     Indication: ONYCHOMYCOSIS
     Dosage: 250 MG; QD PO
     Route: 048

REACTIONS (6)
  - ANOREXIA [None]
  - ASCITES [None]
  - AUTOIMMUNE HEPATITIS [None]
  - CONTRAINDICATION TO MEDICAL TREATMENT [None]
  - MALAISE [None]
  - PLATELET COUNT DECREASED [None]
